FAERS Safety Report 6968806-2 (Version None)
Quarter: 2010Q3

REPORT INFORMATION
  Report Type: 
  Country: None (occurrence: None)
  Receive Date: 20100907
  Receipt Date: 20100901
  Transmission Date: 20110219
  Serious: Yes (Death, Life-Threatening, Hospitalization)
  Sender: FDA-Public Use
  Company Number: ES-ABBOTT-08P-144-0468205-00

PATIENT
  Sex: Male
  Weight: 95 kg

DRUGS (4)
  1. HUMIRA [Suspect]
     Indication: RHEUMATOID ARTHRITIS
     Route: 058
     Dates: start: 20041227, end: 20080701
  2. COMMERCIAL HUMIRA [Concomitant]
     Indication: RHEUMATOID ARTHRITIS
     Route: 058
     Dates: start: 20040331
  3. INDOMETHACIN SODIUM [Concomitant]
     Indication: RHEUMATOID ARTHRITIS
     Dates: start: 19910620, end: 20080729
  4. RIMSTAR [Concomitant]
     Indication: TUBERCULOSIS
     Dates: start: 20080802, end: 20080818

REACTIONS (6)
  - ACUTE RESPIRATORY FAILURE [None]
  - HEPATIC FAILURE [None]
  - LUNG INFECTION [None]
  - MULTI-ORGAN FAILURE [None]
  - ORGANISING PNEUMONIA [None]
  - RENAL FAILURE [None]
